FAERS Safety Report 6145542-6 (Version None)
Quarter: 2009Q2

REPORT INFORMATION
  Report Type: 
  Country: None (occurrence: None)
  Receive Date: 20090402
  Receipt Date: 20090325
  Transmission Date: 20091009
  Serious: Yes (Death, Hospitalization)
  Sender: FDA-Public Use
  Company Number: CERZ-1000574

PATIENT
  Age: 20 Month
  Sex: Female
  Weight: 6.3 kg

DRUGS (1)
  1. CEREZYME [Suspect]
     Indication: GAUCHER'S DISEASE
     Dosage: 60 U/KG, Q2W, INTRAVENOUS
     Route: 042
     Dates: start: 20080819, end: 20090210

REACTIONS (8)
  - CONVULSION [None]
  - HYPOCALCAEMIA [None]
  - LARYNGOSPASM [None]
  - LOSS OF CONSCIOUSNESS [None]
  - RESPIRATORY ARREST [None]
  - SECRETION DISCHARGE [None]
  - STRIDOR [None]
  - VOMITING [None]
